FAERS Safety Report 5642378-7 (Version None)
Quarter: 2008Q1

REPORT INFORMATION
  Report Type: 
  Country: None (occurrence: None)
  Receive Date: 20080227
  Receipt Date: 20080227
  Transmission Date: 20080703
  Serious: Yes (Hospitalization)
  Sender: FDA-Public Use
  Company Number: None

PATIENT
  Sex: Male
  Weight: 84.8226 kg

DRUGS (3)
  1. PREDNISONE TAB [Suspect]
     Indication: B-CELL LYMPHOMA
     Dosage: 100 MG PO Q DAY PRIOR TO ADMISSION (3 DAYS)
  2. UNKNOWN CHEMOTHERAPY [Suspect]
     Indication: B-CELL LYMPHOMA
     Dosage: PRIOR TO ADMISSION
  3. PREVACID [Concomitant]

REACTIONS (5)
  - CONFUSIONAL STATE [None]
  - MENTAL STATUS CHANGES [None]
  - MUSCLE RIGIDITY [None]
  - MUSCLE SPASMS [None]
  - PARANOIA [None]
